FAERS Safety Report 10418405 (Version 1)
Quarter: 2014Q2

REPORT INFORMATION
  Report Type: Spontaneous
  Country: US (occurrence: None)
  Receive Date: 20140616
  Receipt Date: 20140616
  Transmission Date: 20141212
  Serious: Yes (Hospitalization)
  Sender: FDA-Public Use
  Company Number: 2013-003934

PATIENT
  Age: 79 Year
  Sex: Female

DRUGS (1)
  1. ACTONEL (RISEDRONATE SODIUM) TABLET,  35MG [Suspect]
     Indication: OSTEOPOROSIS
     Route: 048

REACTIONS (6)
  - Pelvic fracture [None]
  - Clavicle fracture [None]
  - Alopecia [None]
  - Fall [None]
  - Abasia [None]
  - Musculoskeletal pain [None]
